FAERS Safety Report 4310245-7 (Version None)
Quarter: 2004Q1

REPORT INFORMATION
  Report Type: 
  Country: None (occurrence: None)
  Receive Date: 20040301
  Receipt Date: 20040301
  Transmission Date: 20041129
  Serious: Yes (Hospitalization, Other)
  Sender: FDA-Public Use
  Company Number: None

PATIENT
  Age: 45 Year
  Sex: Female
  Weight: 113.3993 kg

DRUGS (1)
  1. SEROQUEL [Suspect]
     Indication: SOMNOLENCE
     Dosage: 300 MG NIGHTLY ORAL
     Route: 048
     Dates: start: 20020615, end: 20040228

REACTIONS (2)
  - CATARACT [None]
  - DRUG WITHDRAWAL SYNDROME [None]
